FAERS Safety Report 9301243 (Version 2)
Quarter: 2013Q2

REPORT INFORMATION
  Report Type: Spontaneous
  Country: TW (occurrence: TW)
  Receive Date: 20130521
  Receipt Date: 20130604
  Transmission Date: 20140414
  Serious: Yes (Death)
  Sender: FDA-Public Use
  Company Number: TW-ASTRAZENECA-2013SE35131

PATIENT
  Age: 47 Year
  Sex: Male

DRUGS (2)
  1. BRILINTA [Suspect]
     Indication: ACUTE CORONARY SYNDROME
     Route: 048
  2. CLOPIDOGREL [Concomitant]
     Indication: ACUTE CORONARY SYNDROME

REACTIONS (2)
  - Intestinal ischaemia [Fatal]
  - Disease progression [Fatal]
